FAERS Safety Report 14694301 (Version 2)
Quarter: 2018Q2

REPORT INFORMATION
  Report Type: Spontaneous
  Country: US (occurrence: US)
  Receive Date: 20180329
  Receipt Date: 20180510
  Transmission Date: 20180711
  Serious: Yes (Death, Life-Threatening, Other)
  Sender: FDA-Public Use
  Company Number: US-UNITED THERAPEUTICS-UNT-2018-004220

PATIENT
  Sex: Male

DRUGS (7)
  1. UNITUXIN [Suspect]
     Active Substance: DINUTUXIMAB
     Dosage: CYCLE 2
     Route: 041
     Dates: start: 201802
  2. UNITUXIN [Suspect]
     Active Substance: DINUTUXIMAB
     Indication: NEUROBLASTOMA
     Dosage: UNK
     Route: 041
     Dates: start: 2017
  3. IRINOTECAN [Concomitant]
     Active Substance: IRINOTECAN
     Indication: NEUROBLASTOMA
     Dosage: UNK
     Route: 041
     Dates: start: 2017
  4. GM-CSF [Concomitant]
     Active Substance: GRANULOCYTE-MACROPHAGE COLONY-STIMULATING FACTOR
     Indication: NEUROBLASTOMA
     Dosage: UNK
     Route: 041
     Dates: start: 201801
  5. INTERLEUKIN-2 [Suspect]
     Active Substance: ALDESLEUKIN
     Indication: NEUROBLASTOMA
     Dosage: UNK
     Route: 041
     Dates: start: 201802
  6. TEMOZOLOMIDE. [Concomitant]
     Active Substance: TEMOZOLOMIDE
     Indication: NEUROBLASTOMA
     Dosage: UNK
     Route: 041
     Dates: start: 2017
  7. UNITUXIN [Suspect]
     Active Substance: DINUTUXIMAB
     Dosage: CYCLE 1
     Route: 041
     Dates: start: 201801

REACTIONS (12)
  - Mental status changes [Recovered/Resolved]
  - Therapy non-responder [Not Recovered/Not Resolved]
  - Brain injury [Not Recovered/Not Resolved]
  - Pain [Recovered/Resolved]
  - Platelet count decreased [Recovered/Resolved]
  - Hypotension [Recovered/Resolved]
  - Transaminases increased [Unknown]
  - Pulseless electrical activity [Recovered/Resolved]
  - Fluid retention [Unknown]
  - Urinary retention [Unknown]
  - Pulmonary haemorrhage [Fatal]
  - Hypoxia [Not Recovered/Not Resolved]

NARRATIVE: CASE EVENT DATE: 2017
